FAERS Safety Report 7395604-0 (Version None)
Quarter: 2011Q2

REPORT INFORMATION
  Report Type: 
  Country: None (occurrence: None)
  Receive Date: 20110405
  Receipt Date: 20110330
  Transmission Date: 20111010
  Serious: Yes (Disabling, Other)
  Sender: FDA-Public Use
  Company Number: US-PFIZER INC-2011071518

PATIENT
  Sex: Female
  Weight: 72.562 kg

DRUGS (3)
  1. GEODON [Suspect]
     Indication: SEDATIVE THERAPY
     Dosage: 80 MG, 2X/DAY
     Route: 048
     Dates: start: 20080101
  2. ACETAMINOPHEN [Concomitant]
     Indication: MIGRAINE
     Dosage: UNK
     Route: 048
  3. BUSPAR [Concomitant]
     Dosage: UNK

REACTIONS (3)
  - ABASIA [None]
  - PARANOIA [None]
  - PAIN [None]
